FAERS Safety Report 10569876 (Version 2)
Quarter: 2015Q1

REPORT INFORMATION
  Report Type: Spontaneous
  Country: FR (occurrence: FR)
  Receive Date: 20141107
  Receipt Date: 20150324
  Transmission Date: 20150720
  Serious: Yes (Death, Other)
  Sender: FDA-Public Use
  Company Number: FR-AMGEN-FRASP2014085727

PATIENT
  Age: 83 Year
  Sex: Male

DRUGS (10)
  1. KARDEGIC [Concomitant]
     Active Substance: ASPIRIN LYSINE
     Dosage: 75 MG, 1X/DAY
     Route: 048
     Dates: start: 2001
  2. APRANAX                            /00256202/ [Concomitant]
     Active Substance: NAPROXEN
     Dosage: UNK
     Route: 048
     Dates: end: 20140712
  3. ENBREL [Suspect]
     Active Substance: ETANERCEPT
     Indication: ANKYLOSING SPONDYLITIS
     Dosage: 1 DF, WEEKLY
     Route: 058
     Dates: start: 20120217, end: 20140616
  4. NOVATREX (METHOTREXATE) [Concomitant]
     Active Substance: METHOTREXATE SODIUM
     Dosage: 7.5 MG, UNK
     Route: 048
     Dates: start: 20111004, end: 20140712
  5. SPECIAFOLDINE [Concomitant]
     Active Substance: FOLIC ACID
     Dosage: 3 DF, WEEKLY
     Route: 048
     Dates: start: 20111004, end: 20140712
  6. ATORVASTATIN [Concomitant]
     Active Substance: ATORVASTATIN
     Dosage: 20 MG, 1X/DAY
     Route: 048
     Dates: start: 2001
  7. CORVASAL                           /00547101/ [Concomitant]
     Active Substance: MOLSIDOMINE
     Dosage: 2 MG, 3X/DAY
     Route: 048
     Dates: start: 2001
  8. HUMIRA [Suspect]
     Active Substance: ADALIMUMAB
     Indication: ANKYLOSING SPONDYLITIS
     Dosage: 1 DF, WEEKLY
     Route: 058
     Dates: start: 20140616, end: 20140712
  9. CORDARONE [Concomitant]
     Active Substance: AMIODARONE HYDROCHLORIDE
     Dosage: 0.5 DF, 1X/DAY
     Route: 048
     Dates: start: 2001
  10. TENORDATE [Concomitant]
     Active Substance: ATENOLOL\NIFEDIPINE
     Dosage: 1 DF, 1X/DAY
     Route: 048
     Dates: start: 2001

REACTIONS (6)
  - Metastases to liver [Unknown]
  - Prostate cancer [Fatal]
  - Drug ineffective [Unknown]
  - Hepatic cancer [Fatal]
  - Pleural effusion [Unknown]
  - Metastases to bone [Unknown]

NARRATIVE: CASE EVENT DATE: 201406
